FAERS Safety Report 9491135 (Version 2)
Quarter: 2013Q3

REPORT INFORMATION
  Report Type: Report from Study
  Country: IT (occurrence: IT)
  Receive Date: 20130830
  Receipt Date: 20130830
  Transmission Date: 20140515
  Serious: Yes (Other)
  Sender: FDA-Public Use
  Company Number: IT-ASTELLAS-2013EU006456

PATIENT
  Age: 75 Year
  Sex: Male

DRUGS (4)
  1. ENZALUTAMIDE [Suspect]
     Indication: PROSTATE CANCER METASTATIC
     Dosage: 4 DF, UNKNOWN/D
     Route: 065
     Dates: start: 20130308, end: 20130503
  2. ENZALUTAMIDE [Suspect]
     Dosage: 4 DF, UNKNOWN/D
     Route: 065
     Dates: start: 20130509, end: 20130524
  3. ENZALUTAMIDE [Suspect]
     Dosage: 4 DF, UNKNOWN/D
     Route: 065
     Dates: start: 20130603, end: 20130729
  4. ENZALUTAMIDE [Suspect]
     Dosage: 4 DF, UNKNOWN/D
     Route: 065
     Dates: start: 20130812

REACTIONS (6)
  - Transaminases increased [Unknown]
  - Haemoglobin decreased [Unknown]
  - Bronchitis [Unknown]
  - Hallucination [Unknown]
  - Blood creatinine decreased [Unknown]
  - Confusional state [Unknown]
